FAERS Safety Report 5692947-3 (Version None)
Quarter: 2008Q2

REPORT INFORMATION
  Report Type: 
  Country: None (occurrence: None)
  Receive Date: 20080403
  Receipt Date: 20080326
  Transmission Date: 20081010
  Serious: Yes (Other)
  Sender: FDA-Public Use
  Company Number: US-RANBAXY-2008RR-13445

PATIENT

DRUGS (9)
  1. LISINOPRIL [Suspect]
     Dosage: 30 MG, QD
     Route: 048
  2. IRBESARTAN [Suspect]
     Dosage: 75 MG, QD
     Route: 048
  3. AMLODIPINE [Concomitant]
     Dosage: 10 MG, QD
     Route: 048
  4. CYANOCOBALAMIN [Concomitant]
     Dosage: 100 UG, MONTHLY
     Route: 030
  5. FOLIC ACID [Concomitant]
     Dosage: 1 MG, QD
     Route: 048
  6. GEMFIBROZIL [Concomitant]
     Dosage: 200 MG, BID
     Route: 048
  7. METOPROLOL TARTRATE [Concomitant]
     Dosage: 200 MG, QD
     Route: 048
  8. NITROGLYCERIN [Concomitant]
     Dosage: 0.4 MG, Q1H
  9. RANITIDINE [Concomitant]
     Dosage: 150 MG, BID
     Route: 048

REACTIONS (1)
  - PENILE OEDEMA [None]
